FAERS Safety Report 8066900-9 (Version None)
Quarter: 2012Q1

REPORT INFORMATION
  Report Type: 
  Country: None (occurrence: None)
  Receive Date: 20120124
  Receipt Date: 20120119
  Transmission Date: 20120608
  Serious: Yes (Hospitalization, Other)
  Sender: FDA-Public Use
  Company Number: PHHY2011SI93775

PATIENT
  Age: 51 Year
  Sex: Female

DRUGS (3)
  1. ZOLPIDEM [Suspect]
     Route: 048
  2. LORAZEPAM [Suspect]
  3. ACETAMINOPHEN [Suspect]
     Route: 048

REACTIONS (8)
  - COAGULOPATHY [None]
  - TRANSAMINASES INCREASED [None]
  - TOXICITY TO VARIOUS AGENTS [None]
  - DRUG LEVEL INCREASED [None]
  - OESOPHAGOBRONCHIAL FISTULA [None]
  - UNRESPONSIVE TO STIMULI [None]
  - PNEUMONIA [None]
  - SUICIDE ATTEMPT [None]
